FAERS Safety Report 8897885 (Version 1)
Quarter: 2012Q4

REPORT INFORMATION
  Report Type: 
  Country: ZA (occurrence: ZA)
  Receive Date: 20121109
  Receipt Date: 20121109
  Transmission Date: 20130627
  Serious: Yes (Hospitalization, Other)
  Sender: FDA-Public Use
  Company Number: ZA-ELI_LILLY_AND_COMPANY-ZA201211002066

PATIENT
  Age: 47 Year
  Sex: Female

DRUGS (6)
  1. HUMALOG 25% LISPRO, 75% NPL [Suspect]
     Indication: DIABETES MELLITUS
     Dosage: 30 IU, each morning
     Route: 058
  2. HUMALOG 25% LISPRO, 75% NPL [Suspect]
     Dosage: 30 IU, each evening
     Route: 058
  3. METFORMIN [Concomitant]
     Indication: DIABETES MELLITUS
     Dosage: 850 mg, tid
     Route: 048
  4. ELTROXIN [Concomitant]
     Indication: HYPOTHYROIDISM
     Dosage: 0.05 mg, qd
     Route: 048
  5. DISPRIN [Concomitant]
     Dosage: 0.5 DF, qd
     Route: 048
  6. ENAP-CO [Concomitant]
     Indication: HYPERTENSION
     Dosage: 1 DF, qd
     Route: 048

REACTIONS (2)
  - Cellulitis [Recovering/Resolving]
  - Wound [Recovering/Resolving]
